FAERS Safety Report 9551674 (Version 1)
Quarter: 2013Q3

REPORT INFORMATION
  Report Type: Spontaneous
  Country: US (occurrence: None)
  Receive Date: 20130923
  Receipt Date: 20130923
  Transmission Date: 20140515
  Serious: No
  Sender: FDA-Public Use
  Company Number: None

PATIENT
  Age: 46 Year
  Sex: Female

DRUGS (1)
  1. CIMZIA [Suspect]
     Indication: RHEUMATOID ARTHRITIS
     Dosage: INJECT 400 MG UNDER THE SKIN ON WEEKS 2 AND 4
     Dates: start: 20130826

REACTIONS (2)
  - Periorbital contusion [None]
  - Abnormal sensation in eye [None]
